FAERS Safety Report 9784097 (Version 3)
Quarter: 2014Q1

REPORT INFORMATION
  Report Type: Spontaneous
  Country: US (occurrence: US)
  Receive Date: 20131226
  Receipt Date: 20140219
  Transmission Date: 20141002
  Serious: Yes (Other)
  Sender: FDA-Public Use
  Company Number: US-PFIZER INC-2013366702

PATIENT
  Age: 39 Year
  Sex: Female

DRUGS (3)
  1. XELJANZ [Suspect]
     Indication: RHEUMATOID ARTHRITIS
     Dosage: 5 MG, 2X/DAY
     Route: 048
     Dates: start: 20131204, end: 20131206
  2. PERCOCET [Concomitant]
     Indication: RHEUMATOID ARTHRITIS
     Dosage: 10/325 MG , 4X/DAY (1DF QID),
  3. IBUPROFEN [Concomitant]
     Indication: RHEUMATOID ARTHRITIS
     Dosage: 800 MG, 3X/DAY

REACTIONS (9)
  - Amnesia [Recovered/Resolved]
  - Dysarthria [Unknown]
  - Confusional state [Recovered/Resolved]
  - Sedation [Recovered/Resolved]
  - Staphylococcal infection [Unknown]
  - Infective glossitis [Unknown]
  - Urticaria [Recovered/Resolved]
  - Headache [Recovered/Resolved]
  - Speech disorder [Recovered/Resolved]
